FAERS Safety Report 5635383-8 (Version None)
Quarter: 2008Q1

REPORT INFORMATION
  Report Type: 
  Country: None (occurrence: None)
  Receive Date: 20080222
  Receipt Date: 20080213
  Transmission Date: 20080703
  Serious: Yes (Other)
  Sender: FDA-Public Use
  Company Number: US-ABBOTT-08P-163-0438480-00

PATIENT
  Sex: Female

DRUGS (11)
  1. NIASPAN [Suspect]
     Indication: DRUG USE FOR UNKNOWN INDICATION
  2. CHANTIX [Interacting]
     Indication: DRUG USE FOR UNKNOWN INDICATION
     Route: 048
  3. TIOTROPIUM BROMIDE [Interacting]
     Indication: DRUG USE FOR UNKNOWN INDICATION
     Route: 055
  4. CORTICOSTEROIDS [Interacting]
     Indication: DRUG USE FOR UNKNOWN INDICATION
  5. SERITIDE [Interacting]
     Indication: DRUG USE FOR UNKNOWN INDICATION
     Route: 055
  6. CHOLINE MAGNESIUM TRISALICYLATE [Interacting]
     Indication: DRUG USE FOR UNKNOWN INDICATION
  7. ASPIRIN [Concomitant]
     Indication: DRUG USE FOR UNKNOWN INDICATION
  8. METHOTREXATE [Concomitant]
     Indication: DRUG USE FOR UNKNOWN INDICATION
  9. SALBUTAMOL SULFATE [Concomitant]
     Indication: DRUG USE FOR UNKNOWN INDICATION
  10. TRAMADOL HCL [Concomitant]
     Indication: DRUG USE FOR UNKNOWN INDICATION
  11. BENADRYL [Concomitant]
     Indication: DRUG USE FOR UNKNOWN INDICATION

REACTIONS (15)
  - ABNORMAL DREAMS [None]
  - AGITATION [None]
  - BURNING SENSATION [None]
  - CHEST PAIN [None]
  - COUGH [None]
  - DRUG INTERACTION [None]
  - DYSPNOEA [None]
  - FEELING ABNORMAL [None]
  - INCREASED APPETITE [None]
  - INJECTION SITE IRRITATION [None]
  - MYALGIA [None]
  - OSTEOARTHRITIS [None]
  - POSTNASAL DRIP [None]
  - PROTEINURIA [None]
  - WEIGHT DECREASED [None]
